FAERS Safety Report 7886696-0 (Version None)
Quarter: 2011Q4

REPORT INFORMATION
  Report Type: 
  Country: None (occurrence: None)
  Receive Date: 20111102
  Receipt Date: 20110709
  Transmission Date: 20120403
  Serious: No
  Sender: FDA-Public Use
  Company Number: US-AMGEN-USASP2011034966

PATIENT
  Sex: Female

DRUGS (1)
  1. ENBREL [Suspect]
     Indication: PSORIATIC ARTHROPATHY
     Dosage: 50 MG, QWK
     Dates: start: 20100220

REACTIONS (5)
  - THERAPEUTIC RESPONSE DECREASED [None]
  - NASOPHARYNGITIS [None]
  - PSORIASIS [None]
  - HYPOAESTHESIA [None]
  - INJECTION SITE PAIN [None]
